FAERS Safety Report 16922046 (Version 1)
Quarter: 2019Q4

REPORT INFORMATION
  Report Type: Report from Study
  Country: GB (occurrence: GB)
  Receive Date: 20191015
  Receipt Date: 20191015
  Transmission Date: 20200122
  Serious: Yes (Other)
  Sender: FDA-Public Use
  Company Number: PHHY2018GB138290

PATIENT
  Age: 63 Year
  Sex: Female

DRUGS (1)
  1. GILENYA [Suspect]
     Active Substance: FINGOLIMOD HYDROCHLORIDE
     Indication: MULTIPLE SCLEROSIS
     Dosage: 0.5 MG, QD
     Route: 048
     Dates: start: 20181022

REACTIONS (8)
  - Hypertension [Unknown]
  - Ocular discomfort [Unknown]
  - Head discomfort [Not Recovered/Not Resolved]
  - White blood cell count decreased [Unknown]
  - Fall [Unknown]
  - Tooth abscess [Recovered/Resolved]
  - Limb injury [Unknown]
  - Sinus bradycardia [Unknown]

NARRATIVE: CASE EVENT DATE: 201904
